FAERS Safety Report 8716017 (Version 2)
Quarter: 2012Q4

REPORT INFORMATION
  Report Type: 
  Country: US (occurrence: US)
  Receive Date: 20120809
  Receipt Date: 20120920
  Transmission Date: 20130627
  Serious: Yes (Other)
  Sender: FDA-Public Use
  Company Number: US-UCBSA-063048

PATIENT
  Age: 74 None
  Sex: Female

DRUGS (3)
  1. NEUPRO [Suspect]
     Dates: start: 201207, end: 2012
  2. NEUPRO [Suspect]
     Dates: start: 20120716, end: 201207
  3. NEUPRO [Suspect]

REACTIONS (3)
  - Ovarian cancer [Recovered/Resolved]
  - Application site pruritus [Recovered/Resolved]
  - Drug ineffective [Recovered/Resolved]
